FAERS Safety Report 6474609-8 (Version None)
Quarter: 2009Q4

REPORT INFORMATION
  Report Type: 
  Country: None (occurrence: None)
  Receive Date: 20091204
  Receipt Date: 20090414
  Transmission Date: 20100525
  Serious: Yes (Hospitalization, Other)
  Sender: FDA-Public Use
  Company Number: US-ELI_LILLY_AND_COMPANY-US200901001529

PATIENT

DRUGS (1)
  1. PROZAC [Suspect]
     Indication: STRESS
     Dosage: UNK, UNKNOWN
     Route: 064
     Dates: start: 20040101

REACTIONS (6)
  - CYANOSIS [None]
  - DRUG EXPOSURE DURING PREGNANCY [None]
  - FALLOT'S TETRALOGY [None]
  - GROWTH RETARDATION [None]
  - HYPERTENSION [None]
  - HYPOPLASTIC LEFT HEART SYNDROME [None]
